FAERS Safety Report 18159461 (Version 1)
Quarter: 2020Q3

REPORT INFORMATION
  Report Type: Report from Study
  Country: US (occurrence: US)
  Receive Date: 20200817
  Receipt Date: 20200817
  Transmission Date: 20201103
  Serious: Yes (Life-Threatening, Hospitalization)
  Sender: FDA-Public Use
  Company Number: US-EXELIXIS-CABO-20032037

PATIENT
  Sex: Male
  Weight: 63.95 kg

DRUGS (10)
  1. POMEGRANATE [Concomitant]
     Active Substance: POMEGRANATE
  2. CABOMETYX [Suspect]
     Active Substance: CABOZANTINIB S-MALATE
     Indication: RENAL CELL CARCINOMA
     Dosage: 40 MG, QD
     Route: 048
     Dates: start: 20200504
  3. MAGNESIUM HYDROXIDE. [Concomitant]
     Active Substance: MAGNESIUM HYDROXIDE
  4. MULTIVITAMIN [Concomitant]
     Active Substance: VITAMINS
  5. CARDIZEM [Concomitant]
     Active Substance: DILTIAZEM HYDROCHLORIDE
  6. ALEVE [Concomitant]
     Active Substance: NAPROXEN SODIUM
  7. PREDNISONE. [Concomitant]
     Active Substance: PREDNISONE
  8. CINNAMON. [Concomitant]
     Active Substance: CINNAMON
  9. COZAAR [Concomitant]
     Active Substance: LOSARTAN POTASSIUM
  10. LOPRESSOR [Concomitant]
     Active Substance: METOPROLOL TARTRATE

REACTIONS (1)
  - Near death experience [Unknown]
